FAERS Safety Report 14995965 (Version 1)
Quarter: 2018Q2

REPORT INFORMATION
  Report Type: Spontaneous
  Country: US (occurrence: US)
  Receive Date: 20180518
  Receipt Date: 20180518
  Transmission Date: 20180711
  Serious: Yes (Hospitalization)
  Sender: FDA-Public Use
  Company Number: None

PATIENT
  Age: 55 Year
  Sex: Female

DRUGS (3)
  1. OCTREOTIDE. [Suspect]
     Active Substance: OCTREOTIDE
     Indication: POST PROCEDURAL COMPLICATION
     Dosage: ?          OTHER FREQUENCY:TID X 7 DAYS;?
     Route: 058
     Dates: start: 201805
  2. OCTREOTIDE. [Suspect]
     Active Substance: OCTREOTIDE
     Indication: METABOLIC DISORDER
     Dosage: ?          OTHER FREQUENCY:TID X 7 DAYS;?
     Route: 058
     Dates: start: 201805
  3. OCTREOTIDE. [Suspect]
     Active Substance: OCTREOTIDE
     Indication: ENDOCRINE DISORDER
     Dosage: ?          OTHER FREQUENCY:TID X 7 DAYS;?
     Route: 058
     Dates: start: 201805

REACTIONS (1)
  - Thyroidectomy [None]
